FAERS Safety Report 16952455 (Version 1)
Quarter: 2019Q4

REPORT INFORMATION
  Report Type: Other
  Country: CA (occurrence: CA)
  Receive Date: 20191023
  Receipt Date: 20191023
  Transmission Date: 20200122
  Serious: Yes (Other)
  Sender: FDA-Public Use
  Company Number: CA-COLGATE PALMOLIVE COMPANY-20191002629

PATIENT

DRUGS (9)
  1. NIFEDIPINE. [Suspect]
     Active Substance: NIFEDIPINE
     Route: 064
  2. METHYLDOPA. [Suspect]
     Active Substance: METHYLDOPA
     Route: 064
  3. CHLORHEXIDINE UNSPECIFIED [Suspect]
     Active Substance: CHLORHEXIDINE
     Route: 064
  4. VITAMINS NOS [Suspect]
     Active Substance: VITAMINS
     Route: 064
  5. ASA [Suspect]
     Active Substance: ASPIRIN
  6. SILDENAFIL. [Suspect]
     Active Substance: SILDENAFIL
  7. INSULIN [Suspect]
     Active Substance: INSULIN NOS
     Route: 064
  8. METFORMIN [Suspect]
     Active Substance: METFORMIN HYDROCHLORIDE
     Route: 064
  9. DICLECTIN [Suspect]
     Active Substance: DOXYLAMINE SUCCINATE\PYRIDOXINE HYDROCHLORIDE
     Route: 064

REACTIONS (2)
  - Foetal exposure during pregnancy [Unknown]
  - Premature baby [Unknown]
